FAERS Safety Report 10135585 (Version 1)
Quarter: 2014Q2

REPORT INFORMATION
  Report Type: Spontaneous
  Country: FR (occurrence: FR)
  Receive Date: 20140428
  Receipt Date: 20140428
  Transmission Date: 20141212
  Serious: Yes (Hospitalization)
  Sender: FDA-Public Use
  Company Number: FR-ABBVIE-14P-056-1228758-00

PATIENT
  Age: 83 Year
  Sex: Male

DRUGS (2)
  1. ENANTONE [Suspect]
     Indication: PROSTATE CANCER
     Route: 050
     Dates: start: 20130228
  2. ENANTONE [Suspect]
     Route: 050
     Dates: start: 20130529

REACTIONS (8)
  - Syncope [Recovered/Resolved]
  - Skin injury [Recovered/Resolved]
  - Palpitations [Recovered/Resolved]
  - Abdominal distension [Not Recovered/Not Resolved]
  - Injection site nodule [Recovered/Resolved]
  - Muscle spasms [Recovered/Resolved]
  - Injection site pain [Recovered/Resolved]
  - Gynaecomastia [Not Recovered/Not Resolved]
